FAERS Safety Report 24898830 (Version 2)
Quarter: 2025Q1

REPORT INFORMATION
  Report Type: Spontaneous
  Country: US (occurrence: US)
  Receive Date: 20250129
  Receipt Date: 20250311
  Transmission Date: 20250408
  Serious: No
  Sender: LUPIN
  Company Number: US-LUPIN PHARMACEUTICALS INC.-2024-13771

PATIENT
  Age: 68 Year
  Weight: 79.365 kg

DRUGS (1)
  1. BUDESONIDE [Suspect]
     Active Substance: BUDESONIDE
     Indication: Nasal congestion
     Dosage: 1 DOSAGE FORM, QD

REACTIONS (4)
  - Burning sensation [Unknown]
  - Thermal burn [Unknown]
  - Product use issue [Unknown]
  - Product use in unapproved indication [Unknown]
